FAERS Safety Report 16786697 (Version 1)
Quarter: 2019Q3

REPORT INFORMATION
  Report Type: Spontaneous
  Country: US (occurrence: US)
  Receive Date: 20190909
  Receipt Date: 20190909
  Transmission Date: 20191005
  Serious: Yes (Hospitalization)
  Sender: FDA-Public Use
  Company Number: US-INCYTE CORPORATION-2019IN009022

PATIENT

DRUGS (2)
  1. JAKAFI [Suspect]
     Active Substance: RUXOLITINIB
     Dosage: 10 + 15 MG (1 TABLET) ONCE DAILY
     Route: 048
     Dates: start: 20190425
  2. JAKAFI [Suspect]
     Active Substance: RUXOLITINIB
     Dosage: 10 + 15 MG (1 TABLET) ONCE DAILY
     Route: 048
     Dates: start: 20190425

REACTIONS (1)
  - Malaise [Unknown]
